FAERS Safety Report 24404367 (Version 1)
Quarter: 2024Q4

REPORT INFORMATION
  Report Type: Spontaneous
  Country: CA (occurrence: CA)
  Receive Date: 20241007
  Receipt Date: 20241007
  Transmission Date: 20250115
  Serious: Yes (Death)
  Sender: ROCHE
  Company Number: CA-ROCHE-10000095950

PATIENT
  Age: 60 Year
  Sex: Male

DRUGS (11)
  1. RITUXIMAB [Suspect]
     Active Substance: RITUXIMAB
     Indication: Post transplant lymphoproliferative disorder
     Route: 065
  2. BRENTUXIMAB VEDOTIN [Suspect]
     Active Substance: BRENTUXIMAB VEDOTIN
     Indication: Hodgkin^s disease
     Route: 065
  3. DACARBAZINE [Suspect]
     Active Substance: DACARBAZINE
     Indication: Hodgkin^s disease
     Route: 065
  4. DOXORUBICIN [Suspect]
     Active Substance: DOXORUBICIN
     Indication: Hodgkin^s disease
     Route: 065
  5. CISPLATIN [Suspect]
     Active Substance: CISPLATIN
     Indication: Hodgkin^s disease
     Route: 065
  6. GEMCITABINE [Suspect]
     Active Substance: GEMCITABINE
     Indication: Hodgkin^s disease
     Route: 065
  7. BLEOMYCIN [Suspect]
     Active Substance: BLEOMYCIN SULFATE
     Indication: Hodgkin^s disease
     Route: 065
  8. PREDNISOLONE [Suspect]
     Active Substance: PREDNISOLONE
     Indication: Graft versus host disease in skin
     Route: 065
  9. PREDNISOLONE [Suspect]
     Active Substance: PREDNISOLONE
     Indication: Graft versus host disease in lung
  10. PREDNISOLONE [Suspect]
     Active Substance: PREDNISOLONE
     Indication: Graft versus host disease in gastrointestinal tract
  11. VINBLASTINE [Suspect]
     Active Substance: VINBLASTINE
     Indication: Hodgkin^s disease
     Route: 065

REACTIONS (3)
  - COVID-19 [Fatal]
  - Epstein-Barr virus infection reactivation [Fatal]
  - Respiratory failure [Fatal]
